FAERS Safety Report 25528877 (Version 1)
Quarter: 2025Q3

REPORT INFORMATION
  Report Type: Spontaneous
  Country: US (occurrence: US)
  Receive Date: 20250708
  Receipt Date: 20250708
  Transmission Date: 20251020
  Serious: No
  Sender: ABBVIE
  Company Number: US-ABBVIE-6354067

PATIENT
  Sex: Female

DRUGS (1)
  1. RESTASIS [Suspect]
     Active Substance: CYCLOSPORINE
     Indication: Dry eye
     Route: 047

REACTIONS (7)
  - Ulcerative keratitis [Unknown]
  - Eye inflammation [Unknown]
  - Eye pain [Unknown]
  - Eye irritation [Unknown]
  - Drug ineffective [Unknown]
  - Eye disorder [Unknown]
  - Product storage error [Unknown]
